FAERS Safety Report 7021597-1 (Version None)
Quarter: 2010Q3

REPORT INFORMATION
  Report Type: 
  Country: None (occurrence: None)
  Receive Date: 20100928
  Receipt Date: 20100916
  Transmission Date: 20110219
  Serious: Yes (Other)
  Sender: FDA-Public Use
  Company Number: 1000015915

PATIENT
  Age: 57 Year
  Sex: Female

DRUGS (2)
  1. LEXAPRO [Suspect]
     Indication: DEPRESSION
     Dosage: 10 MG (10 MG, 1 IN 1 D), ORAL
     Route: 048
  2. ZIMOVANE (ZOPICLONE) (ZOPICLONE) [Concomitant]

REACTIONS (3)
  - AGITATION [None]
  - ANXIETY [None]
  - DRUG DEPENDENCE [None]
